FAERS Safety Report 7681740-8 (Version None)
Quarter: 2011Q3

REPORT INFORMATION
  Report Type: 
  Country: None (occurrence: None)
  Receive Date: 20110812
  Receipt Date: 20110804
  Transmission Date: 20111222
  Serious: Yes (Other)
  Sender: FDA-Public Use
  Company Number: US-RB-030564-11

PATIENT
  Age: 33 Year
  Sex: Female

DRUGS (9)
  1. BUPRENORPHINE [Suspect]
     Route: 060
     Dates: start: 20090101
  2. SUBUTEX [Suspect]
     Indication: DRUG DEPENDENCE
     Dosage: DOSAGE INFORMATION UNKNOWN
     Route: 065
  3. XANAX [Concomitant]
     Indication: ANXIETY
     Dosage: DOSING INFORMATION UNKNOWN
     Route: 065
  4. BUPRENORPHINE [Suspect]
     Indication: DRUG DEPENDENCE
     Dosage: 8 MG/ VARIOUS DOSED AND VARIOUS STOP DATES
     Route: 060
  5. SOMA [Suspect]
     Indication: BACK PAIN
     Dosage: DOSAGE INFORMATION UNKNOWN
     Route: 065
     Dates: start: 20090101, end: 20100101
  6. SUBOXONE [Suspect]
     Indication: DRUG DEPENDENCE
     Route: 060
     Dates: start: 20080101, end: 20090101
  7. SUBOXONE [Suspect]
     Indication: DRUG DEPENDENCE
     Dosage: SUBLINGUAL FILM/8 MG- VARIOUS DOSES AND VARIOUS STOP DATES
     Route: 060
  8. ADDERALL 5 [Suspect]
     Indication: PRODUCT USED FOR UNKNOWN INDICATION
     Dosage: DOSAGE INFORMATION UNKNOWN
     Route: 065
  9. SUBOXONE [Suspect]
     Dosage: 8 MG/ VARIOUS DOSES AND VARIOUS STOP DATES
     Route: 060
     Dates: end: 20110802

REACTIONS (3)
  - SUBSTANCE ABUSE [None]
  - CONVULSION [None]
  - DRUG WITHDRAWAL SYNDROME [None]
